FAERS Safety Report 15215544 (Version 1)
Quarter: 2020Q3

REPORT INFORMATION
  Report Type: Report from Study
  Country: US (occurrence: US)
  Receive Date: 20180730
  Receipt Date: 20180730
  Transmission Date: 20201104
  Serious: Yes (Death, Life-Threatening, Hospitalization)
  Sender: FDA-Public Use
  Company Number: US-ASTRAZENECA-2015SF13154

PATIENT
  Age: 16872 Day
  Sex: Female
  Weight: 67.3 kg

DRUGS (7)
  1. LISINOPRIL. [Concomitant]
     Active Substance: LISINOPRIL
  2. MEDI4736 [Suspect]
     Active Substance: DURVALUMAB
     Indication: CERVIX CARCINOMA
     Route: 042
     Dates: start: 20150707, end: 20151117
  3. CEDIRANIB. [Suspect]
     Active Substance: CEDIRANIB
     Indication: CERVIX CARCINOMA
     Route: 048
     Dates: start: 20150707, end: 20151109
  4. HCTZ [Concomitant]
     Active Substance: HYDROCHLOROTHIAZIDE
  5. SERTRALINE [Concomitant]
     Active Substance: SERTRALINE HYDROCHLORIDE
  6. CETRIZINE [Concomitant]
     Active Substance: CETIRIZINE HYDROCHLORIDE
     Dosage: 10.0MG AS REQUIRED
  7. TYLENOL [Concomitant]
     Active Substance: ACETAMINOPHEN
     Dosage: 1.0G AS REQUIRED

REACTIONS (8)
  - Pericardial effusion [Unknown]
  - Pulmonary embolism [Unknown]
  - Pulmonary hypertension [Fatal]
  - Cor pulmonale [Fatal]
  - Fatigue [Unknown]
  - Syncope [Unknown]
  - Right ventricular failure [Unknown]
  - Diarrhoea [Unknown]

NARRATIVE: CASE EVENT DATE: 20151109
